FAERS Safety Report 8299684-X (Version None)
Quarter: 2012Q2

REPORT INFORMATION
  Report Type: 
  Country: None (occurrence: None)
  Receive Date: 20120419
  Receipt Date: 20120412
  Transmission Date: 20120825
  Serious: Yes (Death)
  Sender: FDA-Public Use
  Company Number: US-ELI_LILLY_AND_COMPANY-US201203001951

PATIENT
  Sex: Female

DRUGS (11)
  1. KLOR-CON [Concomitant]
  2. LIPITOR [Concomitant]
  3. PREDNISONE TAB [Concomitant]
  4. LASIX [Concomitant]
  5. TIMOLOL MALEATE [Concomitant]
  6. FORTEO [Suspect]
     Indication: OSTEOPOROSIS
     Dosage: UNK, UNKNOWN
  7. FLECAINIDE ACETATE [Concomitant]
  8. LUMIGAN [Concomitant]
  9. ALPHAGAN [Concomitant]
  10. METOPROLOL TARTRATE [Concomitant]
  11. SALBUTAMOL W/BUDESONIDE [Concomitant]

REACTIONS (1)
  - CARDIO-RESPIRATORY ARREST [None]
